FAERS Safety Report 20909024 (Version 2)
Quarter: 2024Q1

REPORT INFORMATION
  Report Type: Other
  Country: JP (occurrence: JP)
  Receive Date: 20220603
  Receipt Date: 20240206
  Transmission Date: 20240410
  Serious: Yes (Other)
  Sender: FDA-Public Use
  Company Number: JP-CHUGAI-2021031904

PATIENT
  Age: 72 Year
  Sex: Female

DRUGS (6)
  1. ENSPRYNG [Suspect]
     Active Substance: SATRALIZUMAB-MWGE
     Indication: Neuromyelitis optica spectrum disorder
     Dosage: 120 MILLIGRAM, ONCE/4WEEKS
     Route: 058
     Dates: start: 20210614
  2. PREDONINE [Concomitant]
     Active Substance: PREDNISOLONE
     Indication: Neuromyelitis optica spectrum disorder
     Dosage: 15MG/DAY
     Route: 048
     Dates: start: 20210614
  3. PREDONINE [Concomitant]
     Active Substance: PREDNISOLONE
     Dosage: 5MG/DAY
     Route: 048
  4. NEXIUM [Concomitant]
     Active Substance: ESOMEPRAZOLE MAGNESIUM
     Dosage: UNK
     Route: 065
  5. MINODRONIC ACID [Concomitant]
     Active Substance: MINODRONIC ACID
     Dosage: UNK
     Route: 065
  6. CARDENALIN [Concomitant]
     Active Substance: DOXAZOSIN MESYLATE
     Dosage: UNK
     Route: 065

REACTIONS (3)
  - Pancytopenia [Recovering/Resolving]
  - Gastric haemorrhage [Unknown]
  - Off label use [Unknown]

NARRATIVE: CASE EVENT DATE: 20210614
